FAERS Safety Report 4778642-3 (Version None)
Quarter: 2005Q3

REPORT INFORMATION
  Report Type: 
  Country: None (occurrence: None)
  Receive Date: 20050926
  Receipt Date: 20050419
  Transmission Date: 20060218
  Serious: Yes (Hospitalization)
  Sender: FDA-Public Use
  Company Number: 401495

PATIENT
  Age: 66 Year
  Sex: Male

DRUGS (7)
  1. ARTIST [Suspect]
     Route: 048
     Dates: start: 20041228, end: 20050217
  2. GLIBENCLAMIDE [Concomitant]
     Dates: start: 20041101, end: 20050228
  3. ALLOPURINOL [Concomitant]
     Dates: start: 20041101, end: 20050228
  4. VOGLIBOSE [Concomitant]
     Dates: start: 20041101, end: 20050228
  5. FUROSEMIDE [Concomitant]
     Dates: start: 20041101, end: 20050228
  6. SPIRONOLACTONE [Concomitant]
     Dates: start: 20041101, end: 20050228
  7. METOPROLOL [Concomitant]

REACTIONS (2)
  - HEPATIC FUNCTION ABNORMAL [None]
  - MALAISE [None]
